FAERS Safety Report 8138346-6 (Version None)
Quarter: 2012Q1

REPORT INFORMATION
  Report Type: 
  Country: None (occurrence: None)
  Receive Date: 20120215
  Receipt Date: 20111021
  Transmission Date: 20120608
  Serious: No
  Sender: FDA-Public Use
  Company Number: US-SANOFI-AVENTIS-2011SA070183

PATIENT
  Age: 63 Year
  Sex: Male

DRUGS (1)
  1. GLYBURIDE [Suspect]
     Route: 048

REACTIONS (1)
  - WEIGHT INCREASED [None]
